FAERS Safety Report 5026883-2 (Version None)
Quarter: 2006Q2

REPORT INFORMATION
  Report Type: 
  Country: None (occurrence: None)
  Receive Date: 20060501
  Receipt Date: 20060208
  Transmission Date: 20061013
  Serious: No
  Sender: FDA-Public Use
  Company Number: 200610789BWH

PATIENT
  Age: 68 Year
  Sex: Female

DRUGS (7)
  1. NEXAVAR [Suspect]
     Indication: RENAL CELL CARCINOMA STAGE UNSPECIFIED
     Dosage: SEE IMGE
     Route: 048
     Dates: start: 20060126, end: 20060204
  2. NEXAVAR [Suspect]
     Indication: RENAL CELL CARCINOMA STAGE UNSPECIFIED
     Dosage: SEE IMGE
     Route: 048
     Dates: start: 20060204, end: 20060205
  3. NEXAVAR [Suspect]
     Indication: RENAL CELL CARCINOMA STAGE UNSPECIFIED
     Dosage: SEE IMGE
     Route: 048
     Dates: start: 20060206
  4. LOTREL [Concomitant]
  5. HYDROCHLOROTHIAZIDE [Concomitant]
  6. LIPITOR [Concomitant]
  7. AMBIEN [Concomitant]

REACTIONS (6)
  - BLOOD PRESSURE INCREASED [None]
  - DRY SKIN [None]
  - DYSPHONIA [None]
  - ERYTHEMA [None]
  - PRURITUS [None]
  - RASH MACULAR [None]
